FAERS Safety Report 5262179-1 (Version None)
Quarter: 2007Q1

REPORT INFORMATION
  Report Type: 
  Country: None (occurrence: None)
  Receive Date: 20070312
  Receipt Date: 20070228
  Transmission Date: 20070707
  Serious: Yes (Other)
  Sender: FDA-Public Use
  Company Number: PHBS2007GR03721

PATIENT
  Age: 33 Year
  Sex: Male

DRUGS (1)
  1. VALSARTAN AND HYDROCHLOROTHIAZIDE [Suspect]

REACTIONS (2)
  - RENAL ARTERY STENOSIS [None]
  - RENAL IMPAIRMENT [None]
